FAERS Safety Report 6259937-3 (Version None)
Quarter: 2009Q3

REPORT INFORMATION
  Report Type: 
  Country: None (occurrence: None)
  Receive Date: 20090706
  Receipt Date: 20090706
  Transmission Date: 20100115
  Serious: Yes (Other)
  Sender: FDA-Public Use
  Company Number: None

PATIENT
  Age: 26 Year
  Sex: Female
  Weight: 108 kg

DRUGS (5)
  1. NORVIR [Suspect]
     Indication: HIV INFECTION
     Dosage: 100MG QDAY PO
     Route: 048
     Dates: start: 20080607, end: 20090702
  2. CIVIC CREAM -CLOBETASOL- 0.05% MN -FROM ITALY- [Suspect]
     Indication: SKIN DISCOLOURATION
     Dosage: APPLIED TO ENTIRE FACE BID TOP
     Route: 061
     Dates: start: 20080601, end: 20090702
  3. TRUVADA [Concomitant]
  4. DAPSONE [Concomitant]
  5. LIPITOR [Concomitant]

REACTIONS (3)
  - INCREASED APPETITE [None]
  - PITUITARY-DEPENDENT CUSHING'S SYNDROME [None]
  - WEIGHT INCREASED [None]
